FAERS Safety Report 5123949-3 (Version None)
Quarter: 2006Q3

REPORT INFORMATION
  Report Type: 
  Country: None (occurrence: None)
  Receive Date: 20060811
  Receipt Date: 20060620
  Transmission Date: 20061208
  Serious: No
  Sender: FDA-Public Use
  Company Number: S06-USA-02419-01

PATIENT
  Age: 71 Year
  Sex: Female

DRUGS (8)
  1. NAMENDA [Suspect]
     Indication: AMNESIA
     Dosage: 10 MG BID PO
     Route: 048
     Dates: start: 20060606, end: 20060612
  2. NAMENDA [Suspect]
     Indication: AMNESIA
     Dosage: 5 MG QD PO
     Route: 048
     Dates: start: 20060516, end: 20060522
  3. NAMENDA [Suspect]
     Indication: AMNESIA
     Dosage: 5 MG BID PO
     Route: 048
     Dates: start: 20060523, end: 20060529
  4. NAMENDA [Suspect]
     Indication: AMNESIA
     Dosage: 15 MG QD PO
     Route: 048
     Dates: start: 20060530, end: 20060605
  5. CARBATROL [Concomitant]
  6. ATENOLOL [Concomitant]
  7. PREVACID [Concomitant]
  8. NORTRIPTYLINE HCL [Concomitant]

REACTIONS (1)
  - SOMNOLENCE [None]
